FAERS Safety Report 7685839-1 (Version None)
Quarter: 2011Q3

REPORT INFORMATION
  Report Type: 
  Country: None (occurrence: None)
  Receive Date: 20110816
  Receipt Date: 20110812
  Transmission Date: 20111222
  Serious: Yes (Hospitalization, Other)
  Sender: FDA-Public Use
  Company Number: JP-PFIZER INC-2011157523

PATIENT
  Age: 71 Year
  Sex: Male

DRUGS (13)
  1. NORVASC [Concomitant]
     Dosage: UNK
     Route: 048
  2. CELECOXIB [Concomitant]
     Dosage: UNK
  3. LYRICA [Suspect]
     Dosage: 150 MG IN THE MORNING AND 225 MG IN THE EVENING
     Route: 048
     Dates: start: 20110209, end: 20110301
  4. LYRICA [Suspect]
     Dosage: 75 MG IN THE MORNING AND 225 MG IN THE EVENING
     Route: 048
     Dates: start: 20110509, end: 20110526
  5. LYRICA [Suspect]
     Dosage: 150 MG, 2X/DAY
     Route: 048
     Dates: start: 20110121, end: 20110208
  6. LYRICA [Suspect]
     Dosage: 225 MG IN THE MORNING AND 300 MG IN THE EVENING
     Route: 048
     Dates: start: 20110302, end: 20110329
  7. LYRICA [Suspect]
     Dosage: 150 MG IN THE MORNING AND 225 MG IN THE EVENING
     Route: 048
     Dates: start: 20110413, end: 20110508
  8. LYRICA [Suspect]
     Dosage: 75 MG IN THE MORNING AND 150 MG IN THE EVENING
     Route: 048
     Dates: start: 20110111, end: 20110120
  9. LYRICA [Suspect]
     Dosage: 225 MG, 1X/DAY
     Route: 048
     Dates: start: 20110527, end: 20110101
  10. CANDESARTAN CILEXETIL [Concomitant]
     Dosage: UNK
     Route: 048
  11. LYRICA [Suspect]
     Dosage: 75 MG, 2X/DAY
     Route: 048
     Dates: start: 20110105, end: 20110110
  12. LYRICA [Suspect]
     Dosage: 150 MG IN THE MORNING AND 300 MG IN THE EVENING
     Route: 048
     Dates: start: 20110330, end: 20110412
  13. LOXONIN [Concomitant]
     Dosage: UNK

REACTIONS (1)
  - BRADYCARDIA [None]
